FAERS Safety Report 4790446-4 (Version None)
Quarter: 2005Q4

REPORT INFORMATION
  Report Type: 
  Country: None (occurrence: None)
  Receive Date: 20051005
  Receipt Date: 20050919
  Transmission Date: 20060501
  Serious: Yes (Other)
  Sender: FDA-Public Use
  Company Number: 005661

PATIENT
  Age: 46 Year
  Sex: Female
  Weight: 74.4 kg

DRUGS (11)
  1. METHOTREXATE [Suspect]
     Indication: SARCOIDOSIS
     Dosage: 7.5 MG, 1/WEEK, ORAL
     Route: 048
     Dates: start: 20040816
  2. COUMADIN [Suspect]
     Dosage: 5 MG, ORAL; 7 MG, 1 TIME WEEKLY, ORAL
     Route: 048
     Dates: start: 20000101
  3. COUMADIN [Suspect]
     Dosage: 5 MG, ORAL; 7 MG, 1 TIME WEEKLY, ORAL
     Route: 048
     Dates: start: 20030101
  4. VERAPAMIL [Concomitant]
  5. DYAZIDE [Concomitant]
  6. SINGULAIR ^MERCK^ (MONTELUKAST SODIUM) [Concomitant]
  7. PREDNISONE [Concomitant]
  8. OXYGEN (OXYGEN) [Concomitant]
  9. PREDNISONE [Concomitant]
  10. ASTELIN [Concomitant]
  11. PEPCID [Concomitant]

REACTIONS (2)
  - FATIGUE [None]
  - HAEMOPTYSIS [None]
